FAERS Safety Report 7163099-8 (Version None)
Quarter: 2010Q4

REPORT INFORMATION
  Report Type: 
  Country: None (occurrence: None)
  Receive Date: 20101215
  Receipt Date: 20100225
  Transmission Date: 20110411
  Serious: Yes (Other)
  Sender: FDA-Public Use
  Company Number: CH-PFIZER INC-2010018060

PATIENT
  Age: 42 Year
  Sex: Female
  Weight: 48 kg

DRUGS (4)
  1. LYRICA [Suspect]
     Indication: NEURALGIA
     Dosage: 50 MG, 1X/DAY
     Route: 048
     Dates: start: 20080101
  2. LYRICA [Suspect]
     Dosage: 100 MG, 1X/DAY
     Route: 048
  3. CITALOPRAM [Concomitant]
     Dosage: 10 MG, 1X/DAY
     Route: 048
     Dates: start: 20080101
  4. TEMESTA [Concomitant]
     Dosage: 1 MG, 1X/DAY
     Route: 048
     Dates: start: 20070101

REACTIONS (5)
  - DIPLOPIA [None]
  - RETINAL DEGENERATION [None]
  - STRABISMUS [None]
  - VISION BLURRED [None]
  - VISUAL ACUITY REDUCED TRANSIENTLY [None]
